FAERS Safety Report 10146853 (Version 1)
Quarter: 2014Q2

REPORT INFORMATION
  Report Type: Spontaneous
  Country: US (occurrence: US)
  Receive Date: 20140501
  Receipt Date: 20140501
  Transmission Date: 20141212
  Serious: Yes (Other)
  Sender: FDA-Public Use
  Company Number: US-TEVA-479068USA

PATIENT
  Age: 61 Year
  Sex: Female

DRUGS (8)
  1. OXALIPLATIN [Suspect]
     Indication: COLORECTAL CANCER METASTATIC
     Dosage: 100 MG/M2, OVER 2 HOURS X 3 WEEKS
     Route: 065
     Dates: start: 201209
  2. CAPECITABINE [Suspect]
     Indication: COLORECTAL CANCER METASTATIC
     Route: 048
     Dates: start: 201209
  3. IRINOTECAN [Suspect]
     Indication: COLORECTAL CANCER METASTATIC
     Dosage: 180 MG/M2, OVER 90 MINUTES
     Route: 042
     Dates: start: 20121217
  4. FOLINIC ACID [Suspect]
     Indication: COLORECTAL CANCER METASTATIC
     Dosage: 400 MG/M2, OVER 120 MINUTES
     Route: 065
     Dates: start: 20121217
  5. FLUOROURACIL [Suspect]
     Indication: COLORECTAL CANCER METASTATIC
     Dosage: 400 MG/M2
     Route: 040
     Dates: start: 20121217
  6. FLUOROURACIL [Suspect]
     Indication: COLORECTAL CANCER METASTATIC
     Dosage: 2400 MG/M2, OVER 46 HOURS
     Route: 041
     Dates: start: 20121217
  7. AFLIBERCEPT [Suspect]
     Indication: COLORECTAL CANCER METASTATIC
     Dosage: 4MG/KG, OVER 1 HOUR X 2 WEEKS
     Route: 041
     Dates: start: 20121217
  8. METRONIDAZOLE [Concomitant]
     Indication: COLITIS
     Route: 065

REACTIONS (5)
  - Blindness transient [Recovered/Resolved]
  - Diarrhoea [Unknown]
  - Nausea [Unknown]
  - Alopecia [Unknown]
  - Thrombocytopenia [Unknown]
